FAERS Safety Report 9502480 (Version 2)
Quarter: 2013Q4

REPORT INFORMATION
  Report Type: Spontaneous
  Country: GB (occurrence: GB)
  Receive Date: 20130906
  Receipt Date: 20131129
  Transmission Date: 20140711
  Serious: Yes (Life-Threatening, Other)
  Sender: FDA-Public Use
  Company Number: GB-MERCK-1308GBR014160

PATIENT
  Age: 35 Year
  Sex: Male
  Weight: 76.2 kg

DRUGS (1)
  1. PROPECIA 1MG FILM-COATED TABLET [Suspect]
     Indication: ALOPECIA
     Dosage: 1 MG, UNK
     Route: 048
     Dates: start: 20130418, end: 20130505

REACTIONS (13)
  - Feeling abnormal [Not Recovered/Not Resolved]
  - Emotional poverty [Not Recovered/Not Resolved]
  - Erectile dysfunction [Not Recovered/Not Resolved]
  - Rectal spasm [Not Recovered/Not Resolved]
  - Soft tissue atrophy [Not Recovered/Not Resolved]
  - Paraesthesia [Not Recovered/Not Resolved]
  - Penis disorder [Not Recovered/Not Resolved]
  - Drug withdrawal syndrome [Not Recovered/Not Resolved]
  - Muscle atrophy [Not Recovered/Not Resolved]
  - Hypogonadism [Not Recovered/Not Resolved]
  - Infertility [Not Recovered/Not Resolved]
  - Penile size reduced [Not Recovered/Not Resolved]
  - Blood testosterone decreased [Not Recovered/Not Resolved]
